FAERS Safety Report 8062824-1 (Version None)
Quarter: 2012Q1

REPORT INFORMATION
  Report Type: 
  Country: None (occurrence: None)
  Receive Date: 20120123
  Receipt Date: 20120112
  Transmission Date: 20120608
  Serious: Yes (Other)
  Sender: FDA-Public Use
  Company Number: GB-JNJFOC-20120104394

PATIENT
  Sex: Female
  Weight: 83 kg

DRUGS (3)
  1. INFLIXIMAB, RECOMBINANT [Suspect]
     Indication: RHEUMATOID ARTHRITIS
     Route: 065
     Dates: start: 20030224, end: 20070425
  2. METHOTREXATE [Concomitant]
     Indication: RHEUMATOID ARTHRITIS
  3. OTHER BIOLOGICS [Concomitant]
     Indication: RHEUMATOID ARTHRITIS

REACTIONS (1)
  - BASAL CELL CARCINOMA [None]
